FAERS Safety Report 9312384 (Version 1)
Quarter: 2013Q2

REPORT INFORMATION
  Report Type: Spontaneous
  Country: US (occurrence: US)
  Receive Date: 20130528
  Receipt Date: 20130528
  Transmission Date: 20140414
  Serious: Yes (Hospitalization, Other)
  Sender: FDA-Public Use
  Company Number: US-TEVA-407204USA

PATIENT
  Sex: Male

DRUGS (2)
  1. ISONIAZID [Suspect]
     Indication: TUBERCULOSIS
     Dates: start: 20130427
  2. PRIFTIN [Suspect]
     Indication: TUBERCULOSIS
     Dates: start: 20130427

REACTIONS (12)
  - Aphagia [Recovering/Resolving]
  - Blindness [Recovering/Resolving]
  - Feeling abnormal [Recovering/Resolving]
  - Dyspnoea [Recovering/Resolving]
  - Hot flush [Recovering/Resolving]
  - Headache [Recovering/Resolving]
  - Tremor [Recovering/Resolving]
  - Vomiting [Unknown]
  - Flushing [Unknown]
  - Hyperhidrosis [Unknown]
  - Dizziness [Unknown]
  - Insomnia [Unknown]
